FAERS Safety Report 12350700 (Version 3)
Quarter: 2016Q3

REPORT INFORMATION
  Report Type: Report from Study
  Country: US (occurrence: US)
  Receive Date: 20160510
  Receipt Date: 20160719
  Transmission Date: 20161109
  Serious: Yes (Hospitalization, Other)
  Sender: FDA-Public Use
  Company Number: US-GILEAD-2016-0212677

PATIENT
  Age: 80 Year
  Sex: Female

DRUGS (1)
  1. AMBRISENTAN [Suspect]
     Active Substance: AMBRISENTAN
     Indication: PRODUCT USED FOR UNKNOWN INDICATION
     Dosage: 10 MG, QD
     Route: 065
     Dates: start: 20090116

REACTIONS (6)
  - Fistula [Unknown]
  - Malaise [Not Recovered/Not Resolved]
  - Dialysis [Not Recovered/Not Resolved]
  - Heart rate decreased [Unknown]
  - Dizziness [Unknown]
  - Blood potassium increased [Unknown]
